FAERS Safety Report 5247606-8 (Version None)
Quarter: 2007Q1

REPORT INFORMATION
  Report Type: 
  Country: None (occurrence: None)
  Receive Date: 20070227
  Receipt Date: 20061120
  Transmission Date: 20070707
  Serious: No
  Sender: FDA-Public Use
  Company Number: US-AMGEN-US200921

PATIENT
  Sex: Female

DRUGS (5)
  1. KEPIVANCE [Suspect]
     Indication: DRUG USE FOR UNKNOWN INDICATION
  2. CARMUSTINE [Concomitant]
  3. ETOPOSIDE [Concomitant]
  4. CYTOSINE ARABINOSIDE [Concomitant]
  5. MELPHALAN [Concomitant]

REACTIONS (1)
  - RASH ERYTHEMATOUS [None]
